FAERS Safety Report 9443056 (Version 6)
Quarter: 2013Q4

REPORT INFORMATION
  Report Type: Spontaneous
  Country: US (occurrence: US)
  Receive Date: 20130806
  Receipt Date: 20131107
  Transmission Date: 20140711
  Serious: Yes (Other)
  Sender: FDA-Public Use
  Company Number: US-VERTEX PHARMACEUTICALS INC-2013-008527

PATIENT
  Age: 54 Year
  Sex: Female
  Weight: 64 kg

DRUGS (13)
  1. INCIVEK [Suspect]
     Indication: HEPATITIS C
     Dosage: 750 MG, TID
     Route: 048
     Dates: start: 20130803, end: 20131025
  2. COPEGUS [Suspect]
     Indication: HEPATITIS C
     Dosage: 600 MG, BID
     Route: 048
     Dates: start: 20130803
  3. COPEGUS [Suspect]
     Dosage: 600 MG, QD
     Route: 048
     Dates: start: 201309
  4. COPEGUS [Suspect]
     Dosage: 200 MG, QD
     Route: 048
  5. PEGASYS [Suspect]
     Indication: HEPATITIS C
     Dosage: 180 ?G, QW
     Route: 058
     Dates: start: 20130803
  6. DOXEPIN [Concomitant]
     Dosage: 50 MG, QD
  7. HYDROXYZINE PAMOATE [Concomitant]
     Dosage: 50 MG, QD
  8. PRILOSEC [Concomitant]
     Dosage: 20 MG, QD
  9. PROCHLORPERAZINE MALEATE [Concomitant]
     Dosage: 10 MG, TID
  10. ATARAX [Concomitant]
     Dosage: 50 MG, HS
  11. COMPAZINE [Concomitant]
     Dosage: 10 MG, TID/PRN
  12. QUESTRAN [Concomitant]
     Dosage: 4 MG, QD
  13. LYRICA [Concomitant]
     Dosage: 75 MG, HS

REACTIONS (25)
  - White blood cell count decreased [Unknown]
  - Dizziness [Unknown]
  - Headache [Recovered/Resolved]
  - Pain [Recovered/Resolved]
  - Injection site erythema [Recovered/Resolved]
  - Injection site pruritus [Not Recovered/Not Resolved]
  - Drug dose omission [Unknown]
  - Blood electrolytes decreased [Unknown]
  - Eye irritation [Unknown]
  - Blood count abnormal [Unknown]
  - Abdominal pain [Unknown]
  - Melanosis coli [Unknown]
  - Rectal polyp [Unknown]
  - Hiatus hernia [Unknown]
  - Abdominal distension [Unknown]
  - Fatigue [Not Recovered/Not Resolved]
  - Eye swelling [Unknown]
  - Anaemia [Not Recovered/Not Resolved]
  - Diarrhoea [Not Recovered/Not Resolved]
  - Anorectal discomfort [Not Recovered/Not Resolved]
  - Anal pruritus [Not Recovered/Not Resolved]
  - Dysgeusia [Not Recovered/Not Resolved]
  - Pruritus [Not Recovered/Not Resolved]
  - Dry skin [Not Recovered/Not Resolved]
  - Rectal haemorrhage [Unknown]
